FAERS Safety Report 8435930-7 (Version None)
Quarter: 2012Q2

REPORT INFORMATION
  Report Type: 
  Country: None (occurrence: None)
  Receive Date: 20120614
  Receipt Date: 20120607
  Transmission Date: 20120825
  Serious: Yes (Other)
  Sender: FDA-Public Use
  Company Number: US-ROCHE-1076142

PATIENT
  Sex: Female

DRUGS (3)
  1. FOSAMAX [Suspect]
     Indication: OSTEOPOROSIS
     Dates: start: 20020101, end: 20100101
  2. ALENDRONATE SODIUM [Suspect]
     Indication: OSTEOPOROSIS
     Dates: start: 20020101, end: 20100101
  3. BONIVA [Suspect]
     Indication: OSTEOPOROSIS
     Dates: start: 20020101, end: 20100101

REACTIONS (3)
  - EMOTIONAL DISTRESS [None]
  - BONE DISORDER [None]
  - FEMUR FRACTURE [None]
